FAERS Safety Report 24367348 (Version 1)
Quarter: 2024Q3

REPORT INFORMATION
  Report Type: Spontaneous
  Country: US (occurrence: US)
  Receive Date: 20240926
  Receipt Date: 20240926
  Transmission Date: 20241017
  Serious: No
  Sender: AMGEN
  Company Number: US-AMGEN-USASP2024189842

PATIENT
  Age: 91 Year
  Sex: Female

DRUGS (1)
  1. PROLIA [Suspect]
     Active Substance: DENOSUMAB
     Indication: Product used for unknown indication
     Dosage: 60 MILLIGRAM, Q6MO
     Route: 058

REACTIONS (5)
  - Eye swelling [Not Recovered/Not Resolved]
  - Skin lesion [Not Recovered/Not Resolved]
  - Pyrexia [Not Recovered/Not Resolved]
  - Infection [Not Recovered/Not Resolved]
  - Back pain [Recovered/Resolved]

NARRATIVE: CASE EVENT DATE: 20200101
